FAERS Safety Report 9565449 (Version 5)
Quarter: 2013Q4

REPORT INFORMATION
  Report Type: Report from Study
  Country: US (occurrence: US)
  Receive Date: 20130930
  Receipt Date: 20131105
  Transmission Date: 20140711
  Serious: Yes (Hospitalization)
  Sender: FDA-Public Use
  Company Number: US-JNJFOC-20130914243

PATIENT
  Age: 7 Year
  Sex: Female
  Weight: 30 kg

DRUGS (4)
  1. REMICADE [Suspect]
     Indication: CROHN^S DISEASE
     Route: 042
     Dates: start: 20111121, end: 20111203
  2. HUMIRA [Concomitant]
     Route: 065
     Dates: start: 20121124
  3. BUDESONIDE [Concomitant]
     Route: 065
  4. METHOTREXATE [Concomitant]
     Route: 065

REACTIONS (2)
  - Benign intracranial hypertension [Recovered/Resolved]
  - Large intestinal stenosis [Recovered/Resolved]
